FAERS Safety Report 8387246-5 (Version None)
Quarter: 2012Q2

REPORT INFORMATION
  Report Type: 
  Country: None (occurrence: None)
  Receive Date: 20120525
  Receipt Date: 20120521
  Transmission Date: 20120825
  Serious: Yes (Other)
  Sender: FDA-Public Use
  Company Number: US-ABBOTT-11P-163-0873479-00

PATIENT
  Sex: Female
  Weight: 59.928 kg

DRUGS (10)
  1. SYNTHROID [Concomitant]
     Indication: HYPOTHYROIDISM
  2. SYNTHROID [Concomitant]
     Indication: THYROIDECTOMY
  3. HUMIRA [Suspect]
     Indication: PSORIASIS
     Dates: start: 20110801
  4. VITAMIN TAB [Concomitant]
     Indication: VITAMIN SUPPLEMENTATION
  5. TACLONEX [Concomitant]
     Indication: PRODUCT USED FOR UNKNOWN INDICATION
  6. HUMIRA [Suspect]
     Indication: PSORIATIC ARTHROPATHY
     Route: 058
     Dates: start: 20020101
  7. VERAPAMIL [Concomitant]
     Indication: CARDIAC MURMUR
  8. HUMIRA [Suspect]
     Indication: PSORIASIS
     Route: 058
     Dates: start: 20110801, end: 20120301
  9. HUMIRA [Suspect]
     Indication: PSORIATIC ARTHROPATHY
     Dates: start: 20110801, end: 20110801
  10. VERAPAMIL [Concomitant]
     Indication: TACHYCARDIA

REACTIONS (8)
  - PAIN IN EXTREMITY [None]
  - NAUSEA [None]
  - NIGHT SWEATS [None]
  - WEIGHT DECREASED [None]
  - PSORIASIS [None]
  - VARICOSE VEIN [None]
  - JOINT SWELLING [None]
  - INFLUENZA LIKE ILLNESS [None]
